FAERS Safety Report 21107023 (Version 2)
Quarter: 2023Q2

REPORT INFORMATION
  Report Type: Spontaneous
  Country: US (occurrence: US)
  Receive Date: 20220720
  Receipt Date: 20230630
  Transmission Date: 20230722
  Serious: No
  Sender: FDA-Public Use
  Company Number: US-JAZZ-2022-US-011870

PATIENT
  Age: 4 Year
  Sex: Female
  Weight: 23 kg

DRUGS (5)
  1. EPIDIOLEX [Suspect]
     Active Substance: CANNABIDIOL
     Indication: Lennox-Gastaut syndrome
     Dosage: 0.6 MILLILITER, BID
     Route: 048
     Dates: start: 20220322
  2. EPIDIOLEX [Suspect]
     Active Substance: CANNABIDIOL
     Indication: Epilepsy
     Dosage: 1.2 MILLILITER, BID
     Route: 048
  3. EPIDIOLEX [Suspect]
     Active Substance: CANNABIDIOL
     Dosage: 1.7 MILLILITER, BID
     Route: 048
  4. KEPPRA [Concomitant]
     Active Substance: LEVETIRACETAM
     Indication: Epilepsy
     Dosage: 800 MG BID
     Dates: start: 2020
  5. TRILEPTAL [Concomitant]
     Active Substance: OXCARBAZEPINE
     Indication: Epilepsy
     Dosage: 540MG BID
     Dates: start: 2020

REACTIONS (1)
  - Pruritus [Recovered/Resolved]

NARRATIVE: CASE EVENT DATE: 20220402
